FAERS Safety Report 22187474 (Version 3)
Quarter: 2024Q1

REPORT INFORMATION
  Report Type: Report from Study
  Country: JP (occurrence: None)
  Receive Date: 20230407
  Receipt Date: 20240329
  Transmission Date: 20240410
  Serious: Yes (Hospitalization)
  Sender: FDA-Public Use
  Company Number: 2023A078435

PATIENT
  Age: 63 Year
  Sex: Female

DRUGS (5)
  1. SAPHNELO [Suspect]
     Active Substance: ANIFROLUMAB\ANIFROLUMAB-FNIA
     Indication: Systemic lupus erythematosus
     Route: 041
     Dates: start: 20230313, end: 20230313
  2. PREDONINE [Suspect]
     Active Substance: PREDNISOLONE
     Indication: Systemic lupus erythematosus
     Dosage: DOSE UNKNOWN
  3. SULFASALAZINE [Concomitant]
     Active Substance: SULFASALAZINE
     Dosage: DOSE UNKNOWN
  4. ABATACEPT(GENETICAL RECOMBINATION) [Concomitant]
     Indication: Systemic lupus erythematosus
     Dosage: DOSE UNKNOWN
  5. METHOTREXATE [Concomitant]
     Active Substance: METHOTREXATE
     Dosage: DOSE UNKNOWN

REACTIONS (7)
  - Stasis dermatitis [Not Recovered/Not Resolved]
  - Osteomyelitis [Recovering/Resolving]
  - Bacteraemia [Not Recovered/Not Resolved]
  - Sleep disorder due to general medical condition, insomnia type [Unknown]
  - Pseudomonas infection [Not Recovered/Not Resolved]
  - Drug ineffective [Unknown]
  - Steroid diabetes [Recovering/Resolving]

NARRATIVE: CASE EVENT DATE: 20230101
